FAERS Safety Report 20093162 (Version 3)
Quarter: 2022Q1

REPORT INFORMATION
  Report Type: Spontaneous
  Country: US (occurrence: US)
  Receive Date: 20211120
  Receipt Date: 20220117
  Transmission Date: 20220423
  Serious: Yes (Other)
  Sender: FDA-Public Use
  Company Number: US-009507513-2110USA007869

PATIENT
  Sex: Female
  Weight: 58.96 kg

DRUGS (2)
  1. KEYTRUDA [Suspect]
     Active Substance: PEMBROLIZUMAB
     Indication: Hodgkin^s disease recurrent
     Dosage: 200 MG EVERY 3 WEEKS
     Route: 042
     Dates: start: 2021
  2. KEYTRUDA [Suspect]
     Active Substance: PEMBROLIZUMAB
     Dosage: 200 MG EVERY 3 WEEKS
     Route: 042
     Dates: start: 20210709, end: 2021

REACTIONS (7)
  - Weight decreased [Not Recovered/Not Resolved]
  - Cancer pain [Recovered/Resolved]
  - Vomiting [Not Recovered/Not Resolved]
  - Colitis [Not Recovered/Not Resolved]
  - Colitis [Recovered/Resolved]
  - Diarrhoea [Not Recovered/Not Resolved]
  - Arthralgia [Recovered/Resolved]

NARRATIVE: CASE EVENT DATE: 20210101
